FAERS Safety Report 24282361 (Version 2)
Quarter: 2024Q4

REPORT INFORMATION
  Report Type: Spontaneous
  Country: DE (occurrence: DE)
  Receive Date: 20240904
  Receipt Date: 20241213
  Transmission Date: 20250115
  Serious: Yes (Death, Other)
  Sender: BRISTOL-MYERS SQUIBB COMPANY
  Company Number: DE-BRISTOL-MYERS SQUIBB COMPANY-2024-140352

PATIENT
  Age: 69 Year
  Sex: Male

DRUGS (2)
  1. OPDIVO [Suspect]
     Active Substance: NIVOLUMAB
     Indication: Renal cell carcinoma
     Dosage: 01-JUL-24 THE FIRST CYCLE WITH  OPDIVO/YERVOY WAS STARTED AND ON 22-JUL-24 THE SECOND CYCLE.
     Dates: start: 20240701
  2. YERVOY [Suspect]
     Active Substance: IPILIMUMAB
     Indication: Renal cell carcinoma
     Dosage: 01-JUL-24 THE FIRST CYCLE WITH  OPDIVO/YERVOY WAS STARTED AND ON 22-JUL-24 THE SECOND CYCLE.
     Dates: start: 20240701

REACTIONS (1)
  - Death [Fatal]

NARRATIVE: CASE EVENT DATE: 20240825
